FAERS Safety Report 25661896 (Version 1)
Quarter: 2025Q3

REPORT INFORMATION
  Report Type: Spontaneous
  Country: US (occurrence: US)
  Receive Date: 20250809
  Receipt Date: 20250809
  Transmission Date: 20251021
  Serious: No
  Sender: ELI LILLY AND COMPANY
  Company Number: US-ELI_LILLY_AND_COMPANY-US202508007346

PATIENT
  Age: 70 Year
  Sex: Female

DRUGS (2)
  1. HUMALOG [Suspect]
     Active Substance: INSULIN LISPRO
     Indication: Type 2 diabetes mellitus
     Route: 058
     Dates: start: 2016
  2. HUMALOG [Suspect]
     Active Substance: INSULIN LISPRO
     Route: 058

REACTIONS (2)
  - Blood glucose increased [Unknown]
  - Wrong patient received product [Unknown]

NARRATIVE: CASE EVENT DATE: 20250807
